FAERS Safety Report 4620896-8 (Version None)
Quarter: 2005Q1

REPORT INFORMATION
  Report Type: 
  Country: None (occurrence: None)
  Receive Date: 20050325
  Receipt Date: 20050317
  Transmission Date: 20050727
  Serious: Yes (Hospitalization)
  Sender: FDA-Public Use
  Company Number: TCI2005A01625

PATIENT
  Age: 79 Year
  Sex: Female

DRUGS (4)
  1. ACTOS [Suspect]
     Indication: DIABETES MELLITUS
     Dosage: 15 MG (15 MG, 1 D)
     Route: 048
     Dates: start: 20030915, end: 20050301
  2. BLOPRESS (CANDESARTAN CILEXETIL) [Concomitant]
  3. GLYBURIDE [Concomitant]
  4. ATELEC (CILNIDIPINE) [Concomitant]

REACTIONS (3)
  - CARDIAC FAILURE [None]
  - NASOPHARYNGITIS [None]
  - PNEUMONIA [None]
